FAERS Safety Report 6912529-2 (Version None)
Quarter: 2010Q3

REPORT INFORMATION
  Report Type: 
  Country: None (occurrence: None)
  Receive Date: 20100806
  Receipt Date: 20080722
  Transmission Date: 20110219
  Serious: No
  Sender: FDA-Public Use
  Company Number: US-PFIZER INC-2008056730

PATIENT
  Sex: Male
  Weight: 78.2 kg

DRUGS (7)
  1. DETROL LA [Suspect]
     Indication: BLADDER DISORDER
  2. FINASTERIDE [Concomitant]
     Indication: PROSTATIC DISORDER
  3. ALL OTHER THERAPEUTIC PRODUCTS [Concomitant]
  4. VITAMIN B1 TAB [Concomitant]
  5. CALCIUM/VITAMIN D/VITAMIN K [Concomitant]
  6. MULTI-VITAMINS [Concomitant]
  7. FERROUS SULFATE [Concomitant]

REACTIONS (1)
  - DRY MOUTH [None]
